FAERS Safety Report 9857329 (Version 3)
Quarter: 2014Q1

REPORT INFORMATION
  Report Type: Report from Study
  Country: US (occurrence: US)
  Receive Date: 20140130
  Receipt Date: 20140225
  Transmission Date: 20141002
  Serious: Yes (Hospitalization)
  Sender: FDA-Public Use
  Company Number: US-ABBVIE-14P-163-1193793-00

PATIENT
  Sex: Female

DRUGS (11)
  1. HUMIRA [Suspect]
     Indication: PSORIATIC ARTHROPATHY
     Route: 058
     Dates: start: 20130926
  2. HUMIRA [Suspect]
     Dates: start: 201401
  3. METHOTREXATE [Concomitant]
  4. FOLIC ACID [Concomitant]
  5. LEUCOVORIN [Concomitant]
  6. NORCO [Concomitant]
  7. PROPANOLOL [Concomitant]
  8. TRAZODONE [Concomitant]
  9. FERROUS SULFATE [Concomitant]
  10. VERAPAMIL [Concomitant]
  11. ISOSORBIDE DN [Concomitant]

REACTIONS (4)
  - Colitis ischaemic [Recovering/Resolving]
  - Diarrhoea haemorrhagic [Unknown]
  - Vomiting [Unknown]
  - Nausea [Unknown]
